FAERS Safety Report 15784483 (Version 1)
Quarter: 2019Q1

REPORT INFORMATION
  Report Type: Spontaneous
  Country: PL (occurrence: PL)
  Receive Date: 20190103
  Receipt Date: 20190103
  Transmission Date: 20190417
  Serious: Yes (Life-Threatening, Hospitalization, Other)
  Sender: FDA-Public Use
  Company Number: PL-ACCORD-098905

PATIENT
  Age: 70 Year
  Sex: Female
  Weight: 77 kg

DRUGS (5)
  1. ACETYLSALICYLIC ACID [Concomitant]
     Active Substance: ASPIRIN
     Indication: ANTICOAGULANT THERAPY
     Dates: start: 2017
  2. ETOPOSIDE. [Suspect]
     Active Substance: ETOPOSIDE
     Indication: SMALL CELL LUNG CANCER
     Dosage: ON DAYS 1-3
     Dates: start: 2017, end: 2017
  3. CLOPIDOGREL [Concomitant]
     Active Substance: CLOPIDOGREL BISULFATE
     Indication: ANTICOAGULANT THERAPY
     Dates: start: 2017
  4. CISPLATIN. [Suspect]
     Active Substance: CISPLATIN
     Indication: SMALL CELL LUNG CANCER
     Dosage: ON DAYS 1-3
     Dates: start: 2017, end: 2017
  5. CARBOPLATIN. [Suspect]
     Active Substance: CARBOPLATIN
     Indication: SMALL CELL LUNG CANCER
     Dosage: DAY 1
     Dates: start: 2017, end: 2017

REACTIONS (11)
  - Transaminases increased [Recovered/Resolved]
  - Blood uric acid increased [Recovered/Resolved]
  - Respiratory failure [Recovering/Resolving]
  - Anxiety [Unknown]
  - Blood urea increased [Recovered/Resolved]
  - Pancytopenia [Recovered/Resolved]
  - Tumour lysis syndrome [Recovering/Resolving]
  - Off label use [Unknown]
  - Acute myocardial infarction [Unknown]
  - Left ventricular dysfunction [Unknown]
  - Blood creatinine increased [Recovered/Resolved]

NARRATIVE: CASE EVENT DATE: 2017
